FAERS Safety Report 6817386-0 (Version None)
Quarter: 2010Q3

REPORT INFORMATION
  Report Type: 
  Country: None (occurrence: None)
  Receive Date: 20100706
  Receipt Date: 20100622
  Transmission Date: 20110219
  Serious: Yes (Other)
  Sender: FDA-Public Use
  Company Number: US-JNJFOC-20100607882

PATIENT
  Sex: Female

DRUGS (2)
  1. CONCENTRATED MOTRIN INFANTS DROPS [Suspect]
     Route: 048
  2. CONCENTRATED MOTRIN INFANTS DROPS [Suspect]
     Indication: PRODUCT USED FOR UNKNOWN INDICATION
     Route: 048

REACTIONS (8)
  - DECREASED APPETITE [None]
  - DIARRHOEA HAEMORRHAGIC [None]
  - FREQUENT BOWEL MOVEMENTS [None]
  - GASTROINTESTINAL DISORDER [None]
  - HAEMATOCHEZIA [None]
  - LETHARGY [None]
  - PRODUCT CONTAMINATION PHYSICAL [None]
  - RECTAL TENESMUS [None]
